FAERS Safety Report 9610830 (Version 2)
Quarter: 2014Q1

REPORT INFORMATION
  Report Type: Spontaneous
  Country: CA (occurrence: CA)
  Receive Date: 20131009
  Receipt Date: 20140213
  Transmission Date: 20141002
  Serious: Yes (Hospitalization, Other)
  Sender: FDA-Public Use
  Company Number: CA-ROCHE-1286723

PATIENT
  Age: 75 Year
  Sex: Female

DRUGS (5)
  1. LUCENTIS [Suspect]
     Indication: AGE-RELATED MACULAR DEGENERATION
     Dosage: LEFT EYE
     Route: 050
     Dates: start: 20120427
  2. LUCENTIS [Suspect]
     Route: 050
     Dates: start: 20130906
  3. LORAZEPAM [Concomitant]
  4. ASA [Concomitant]
  5. CRESTOR [Concomitant]

REACTIONS (3)
  - Chest discomfort [Unknown]
  - Dyspnoea [Unknown]
  - Transient ischaemic attack [Unknown]
